FAERS Safety Report 15697383 (Version 1)
Quarter: 2018Q4

REPORT INFORMATION
  Report Type: Report from Study
  Country: None (occurrence: GB)
  Receive Date: 20181207
  Receipt Date: 20181207
  Transmission Date: 20190205
  Serious: Yes (Hospitalization)
  Sender: FDA-Public Use
  Company Number: GB-ABBVIE-18S-167-2580257-00

PATIENT
  Age: 60 Year
  Sex: Male

DRUGS (3)
  1. DUODOPA [Suspect]
     Active Substance: CARBIDOPA\LEVODOPA
     Route: 050
  2. DUODOPA [Suspect]
     Active Substance: CARBIDOPA\LEVODOPA
     Indication: PARKINSON^S DISEASE
     Dosage: 5MG/1ML, 20MG/1ML. ONE CASSETTE ONE DAILY
     Route: 050
  3. DUODOPA [Suspect]
     Active Substance: CARBIDOPA\LEVODOPA
     Route: 050

REACTIONS (4)
  - Femoral neck fracture [Unknown]
  - Wrong technique in product usage process [Unknown]
  - Device occlusion [Unknown]
  - Fall [Unknown]

NARRATIVE: CASE EVENT DATE: 20181202
